FAERS Safety Report 9678730 (Version 1)
Quarter: 2013Q4

REPORT INFORMATION
  Report Type: Report from Study
  Country: FR (occurrence: FR)
  Receive Date: 20131108
  Receipt Date: 20131108
  Transmission Date: 20140711
  Serious: Yes (Other)
  Sender: FDA-Public Use
  Company Number: FR-PFIZER INC-2013316396

PATIENT
  Age: 48 Year
  Sex: Female

DRUGS (3)
  1. OXALIPLATIN [Suspect]
     Indication: PSEUDOMYXOMA PERITONEI
     Dosage: 460 MG/M2 FOR 30 MINS
     Route: 033
  2. LEUCOVORIN [Concomitant]
     Dosage: UNK
     Route: 042
  3. 5-FU [Concomitant]
     Dosage: UNK
     Route: 042

REACTIONS (1)
  - Histiocytosis haematophagic [Recovering/Resolving]
